FAERS Safety Report 12893022 (Version 7)
Quarter: 2017Q1

REPORT INFORMATION
  Report Type: Report from Study
  Country: SI (occurrence: SI)
  Receive Date: 20161028
  Receipt Date: 20170201
  Transmission Date: 20170428
  Serious: Yes (Death, Hospitalization, Other)
  Sender: FDA-Public Use
  Company Number: SI-BAYER-2016-203351

PATIENT
  Age: 66 Year
  Sex: Male

DRUGS (7)
  1. PANTOPRAZOLE [Concomitant]
     Active Substance: PANTOPRAZOLE SODIUM
     Dosage: UNK
  2. NEXAVAR [Suspect]
     Active Substance: SORAFENIB
     Indication: HEPATOCELLULAR CARCINOMA
     Dosage: 400 MG, BID
     Route: 048
     Dates: start: 20161011, end: 20161020
  3. PARACETAMOL W/TRAMADOL [Concomitant]
     Dosage: UNK
  4. NEXAVAR [Suspect]
     Active Substance: SORAFENIB
     Indication: HEPATOCELLULAR CARCINOMA
     Dosage: 200 MG, BID
     Route: 048
     Dates: start: 20161121
  5. ASPIRIN PROTECT [Concomitant]
     Active Substance: ASPIRIN
     Dosage: UNK
  6. CORYOL [Concomitant]
     Active Substance: CARVEDILOL
     Dosage: 12.5 MG, BID
  7. PRENESSA [Concomitant]
     Active Substance: PERINDOPRIL
     Dosage: 4 MG, OM

REACTIONS (19)
  - Haemoptysis [Recovering/Resolving]
  - Erythema [Not Recovered/Not Resolved]
  - Thrombosis [Fatal]
  - Anaemia [None]
  - Wound haemorrhage [None]
  - Constipation [Not Recovered/Not Resolved]
  - Skin reaction [Not Recovered/Not Resolved]
  - Tongue discomfort [None]
  - Increased viscosity of bronchial secretion [Recovering/Resolving]
  - Constipation [Recovered/Resolved]
  - Dry skin [None]
  - Haemoptysis [None]
  - Increased viscosity of bronchial secretion [Not Recovered/Not Resolved]
  - Fatigue [Not Recovered/Not Resolved]
  - Haematochezia [None]
  - Decreased appetite [Not Recovered/Not Resolved]
  - Asthenia [Not Recovered/Not Resolved]
  - Thrombotic stroke [Fatal]
  - Stomatitis [Not Recovered/Not Resolved]

NARRATIVE: CASE EVENT DATE: 2016
